FAERS Safety Report 8834864 (Version 2)
Quarter: 2013Q1

REPORT INFORMATION
  Report Type: Spontaneous
  Country: IT (occurrence: None)
  Receive Date: 20121009
  Receipt Date: 20121031
  Transmission Date: 20140127
  Serious: Yes (Hospitalization)
  Sender: FDA-Public Use
  Company Number: DSA_60043_2012

PATIENT
  Age: 81 Year
  Sex: Male

DRUGS (14)
  1. DILTIAZEM HYDROCHLORIDE [Suspect]
     Indication: CARDIAC FAILURE
     Route: 048
  2. DILTIAZEM HYDROCHLORIDE [Suspect]
     Indication: ANGINA PECTORIS
     Route: 048
  3. RANOLAZINE [Suspect]
     Indication: CARDIAC FAILURE
     Dates: start: 2011, end: 2011
  4. RANOLAZINE [Suspect]
     Indication: ANGINA PECTORIS
     Dates: start: 2011, end: 2011
  5. CLOPIDOGREL [Concomitant]
  6. ISOSORBIDE MONONITRATE [Concomitant]
  7. CARVEDILOL [Concomitant]
  8. ROSUVASTATIN [Concomitant]
  9. ENOXAPARIN [Concomitant]
  10. PENTOXIFYLLINE [Concomitant]
  11. PANTOPRAZOLE [Concomitant]
  12. ENALAPRIL [Concomitant]
  13. FUROSEMIDE [Concomitant]
  14. SPIRONOLACTONE [Concomitant]

REACTIONS (6)
  - Urinary retention [None]
  - Hypotonic urinary bladder [None]
  - Angina pectoris [None]
  - Cardiac failure [None]
  - Condition aggravated [None]
  - Drug interaction [None]
